FAERS Safety Report 16748933 (Version 2)
Quarter: 2019Q4

REPORT INFORMATION
  Report Type: Other
  Country: LB (occurrence: LB)
  Receive Date: 20190828
  Receipt Date: 20191016
  Transmission Date: 20200122
  Serious: Yes (Death, Life-Threatening, Hospitalization, Other)
  Sender: FDA-Public Use
  Company Number: LB-DENTSPLY-2019SCDP000461

PATIENT
  Age: 33 Year
  Sex: Female
  Weight: 73 kg

DRUGS (1)
  1. LIDOCAINE. [Suspect]
     Active Substance: LIDOCAINE
     Indication: ANAESTHESIA
     Dosage: 50 MILLILITER, FIVE VIALS OF 50 ML LIDOCAINE 2% (20 MG/ML)
     Route: 058
     Dates: start: 2016, end: 2016

REACTIONS (11)
  - Organ failure [Fatal]
  - Cardio-respiratory arrest [Recovered/Resolved]
  - Loss of consciousness [Unknown]
  - Pneumonia aspiration [Unknown]
  - Generalised tonic-clonic seizure [Unknown]
  - Septic shock [Fatal]
  - Cerebral ischaemia [Fatal]
  - Nosocomial infection [Fatal]
  - Toxicity to various agents [Fatal]
  - Electrolyte imbalance [Fatal]
  - Brain injury [Fatal]

NARRATIVE: CASE EVENT DATE: 2016
